FAERS Safety Report 10206170 (Version 1)
Quarter: 2014Q2

REPORT INFORMATION
  Report Type: Spontaneous
  Country: US (occurrence: None)
  Receive Date: 20140528
  Receipt Date: 20140528
  Transmission Date: 20141212
  Serious: No
  Sender: FDA-Public Use
  Company Number: None

PATIENT
  Age: 44 Year
  Sex: Male

DRUGS (2)
  1. CEFALOZIN [Suspect]
     Dates: start: 20130408, end: 20130408
  2. SEVOFLURANE [Suspect]
     Dates: start: 20130408

REACTIONS (12)
  - Myalgia [None]
  - Chills [None]
  - Chills [None]
  - Upper respiratory tract infection [None]
  - Influenza like illness [None]
  - Pruritus [None]
  - Chromaturia [None]
  - Faeces pale [None]
  - Aspartate aminotransferase increased [None]
  - Alanine aminotransferase increased [None]
  - Blood alkaline phosphatase increased [None]
  - Blood bilirubin increased [None]
